FAERS Safety Report 6332712-7 (Version None)
Quarter: 2009Q3

REPORT INFORMATION
  Report Type: 
  Country: None (occurrence: None)
  Receive Date: 20090828
  Receipt Date: 20090827
  Transmission Date: 20100115
  Serious: Yes (Hospitalization)
  Sender: FDA-Public Use
  Company Number: A0804701A

PATIENT
  Age: 64 Year
  Sex: Female

DRUGS (2)
  1. ALLI [Suspect]
     Indication: WEIGHT LOSS DIET
     Route: 048
     Dates: start: 20090505, end: 20090801
  2. BONIVA [Concomitant]

REACTIONS (9)
  - BACK PAIN [None]
  - CHEST PAIN [None]
  - CHOLECYSTECTOMY [None]
  - CHOLELITHIASIS [None]
  - HEART RATE DECREASED [None]
  - HEPATIC ENZYME INCREASED [None]
  - PAIN [None]
  - PANCREATIC ENZYMES INCREASED [None]
  - TREATMENT NONCOMPLIANCE [None]
